FAERS Safety Report 11020720 (Version 3)
Quarter: 2015Q2

REPORT INFORMATION
  Report Type: Report from Study
  Country: US (occurrence: US)
  Receive Date: 20150413
  Receipt Date: 20150626
  Transmission Date: 20150821
  Serious: Yes (Hospitalization)
  Sender: FDA-Public Use
  Company Number: US-BIOGENIDEC-2015BI046010

PATIENT
  Age: 56 Year
  Sex: Male
  Weight: 71 kg

DRUGS (16)
  1. PROVIGIL [Concomitant]
     Active Substance: MODAFINIL
     Route: 048
     Dates: start: 20150225
  2. SCOPOLAMINE [Concomitant]
     Active Substance: SCOPOLAMINE
     Route: 062
  3. TYSABRI [Suspect]
     Active Substance: NATALIZUMAB
     Indication: MULTIPLE SCLEROSIS
     Route: 042
     Dates: start: 20100310, end: 20110914
  4. TYSABRI [Suspect]
     Active Substance: NATALIZUMAB
     Indication: MULTIPLE SCLEROSIS
     Route: 042
     Dates: start: 20140204
  5. FLOMAX [Concomitant]
     Active Substance: TAMSULOSIN HYDROCHLORIDE
     Route: 048
     Dates: start: 20150204
  6. TESTOSTERONE. [Concomitant]
     Active Substance: TESTOSTERONE
     Dates: start: 20150202
  7. DELATESTRYL [Concomitant]
     Active Substance: TESTOSTERONE ENANTHATE
     Dates: start: 20150204
  8. CHOLECALCIFEROL [Concomitant]
     Active Substance: CHOLECALCIFEROL
     Route: 048
  9. NORCO [Concomitant]
     Active Substance: ACETAMINOPHEN\HYDROCODONE BITARTRATE
     Route: 048
     Dates: start: 20150305
  10. NEURONTIN [Concomitant]
     Active Substance: GABAPENTIN
     Route: 048
     Dates: start: 20130401
  11. NEURONTIN [Concomitant]
     Active Substance: GABAPENTIN
     Route: 048
     Dates: start: 20150302
  12. RESTORIL [Concomitant]
     Active Substance: TEMAZEPAM
     Route: 048
  13. HEPARIN [Concomitant]
     Active Substance: HEPARIN SODIUM
     Indication: THROMBOSIS PROPHYLAXIS
  14. ZANAFLEX [Concomitant]
     Active Substance: TIZANIDINE HYDROCHLORIDE
     Route: 048
     Dates: start: 20150127
  15. CELEXA [Concomitant]
     Active Substance: CITALOPRAM HYDROBROMIDE
     Route: 048
     Dates: start: 20150304
  16. PRILOSEC [Concomitant]
     Active Substance: OMEPRAZOLE MAGNESIUM
     Route: 048

REACTIONS (9)
  - C-reactive protein increased [Unknown]
  - Back pain [Recovered/Resolved]
  - Pyrexia [Recovered/Resolved]
  - Hypertension [Unknown]
  - Leukocytosis [Recovered/Resolved]
  - Nausea [Unknown]
  - Asthenia [Recovered/Resolved]
  - Tachypnoea [Unknown]
  - Acute sinusitis [Recovered/Resolved]

NARRATIVE: CASE EVENT DATE: 20150314
